FAERS Safety Report 12133344 (Version 1)
Quarter: 2016Q1

REPORT INFORMATION
  Report Type: Other
  Country: ES (occurrence: ES)
  Receive Date: 20160301
  Receipt Date: 20160301
  Transmission Date: 20160526
  Serious: Yes (Death, Other)
  Sender: FDA-Public Use
  Company Number: ES-JUBILANT GENERICS LIMITED-1048510

PATIENT
  Age: 81 Year
  Sex: Female

DRUGS (2)
  1. LEVOFLOXACIN. [Suspect]
     Active Substance: LEVOFLOXACIN
  2. ACENOCOUMAROL [Suspect]
     Active Substance: ACENOCOUMAROL

REACTIONS (3)
  - Death [Fatal]
  - International normalised ratio increased [Recovered/Resolved]
  - Drug interaction [Recovered/Resolved]

NARRATIVE: CASE EVENT DATE: 20160215
